FAERS Safety Report 9034110 (Version 1)
Quarter: 2013Q1

REPORT INFORMATION
  Report Type: Spontaneous
  Country: US (occurrence: None)
  Receive Date: 20130116
  Receipt Date: 20130116
  Transmission Date: 20140127
  Serious: No
  Sender: FDA-Public Use
  Company Number: None

PATIENT
  Sex: Male

DRUGS (3)
  1. VELCADE MILLENNIUM [Suspect]
  2. DEX [Suspect]
  3. CYTOXIN [Suspect]

REACTIONS (2)
  - Platelet count decreased [None]
  - Red blood cell count decreased [None]
